FAERS Safety Report 26112637 (Version 1)
Quarter: 2025Q4

REPORT INFORMATION
  Report Type: Spontaneous
  Country: US (occurrence: US)
  Receive Date: 20251202
  Receipt Date: 20251202
  Transmission Date: 20260117
  Serious: No
  Sender: KARYOPHARM THERAPEUTICS
  Company Number: US-KARYOPHARM-2025KPT101006

PATIENT

DRUGS (6)
  1. SELINEXOR [Suspect]
     Active Substance: SELINEXOR
     Indication: Plasma cell myeloma
     Dosage: 40 MG WEEKLY
     Route: 048
     Dates: start: 20250319
  2. ACYCLOVIR [Concomitant]
     Active Substance: ACYCLOVIR
  3. ASPIRIN [Concomitant]
     Active Substance: ASPIRIN
  4. DEXAMETHASONE [Concomitant]
     Active Substance: DEXAMETHASONE
  5. PROCHLORPERAZINE MALEATE [Concomitant]
     Active Substance: PROCHLORPERAZINE MALEATE
  6. VELCADE [Concomitant]
     Active Substance: BORTEZOMIB

REACTIONS (1)
  - Nausea [Unknown]

NARRATIVE: CASE EVENT DATE: 20250101
